FAERS Safety Report 5621185-5 (Version None)
Quarter: 2008Q1

REPORT INFORMATION
  Report Type: 
  Country: None (occurrence: None)
  Receive Date: 20080114
  Receipt Date: 20061207
  Transmission Date: 20080703
  Serious: Yes (Hospitalization)
  Sender: FDA-Public Use
  Company Number: A03200607365

PATIENT
  Age: 73 Year
  Sex: Female
  Weight: 99.77 kg

DRUGS (5)
  1. PLAVIX [Suspect]
     Indication: ATRIAL FIBRILLATION
     Dosage: 75 MG QD - ORAL
     Route: 048
     Dates: start: 20010101, end: 20061107
  2. PLAVIX [Suspect]
     Indication: BLOOD CHOLESTEROL INCREASED
     Dosage: 75 MG QD - ORAL
     Route: 048
     Dates: start: 20010101, end: 20061107
  3. DILTIAZEM HYDROCHLORIDE [Concomitant]
  4. FUROSEMIDE [Concomitant]
  5. POTASSIUM CHLORIDE [Concomitant]

REACTIONS (1)
  - GASTROINTESTINAL HAEMORRHAGE [None]
